FAERS Safety Report 7397407-X (Version None)
Quarter: 2011Q2

REPORT INFORMATION
  Report Type: 
  Country: None (occurrence: None)
  Receive Date: 20110406
  Receipt Date: 20110402
  Transmission Date: 20111010
  Serious: Yes (Other)
  Sender: FDA-Public Use
  Company Number: US-PFIZER INC-2011073372

PATIENT
  Sex: Female

DRUGS (1)
  1. EFFEXOR [Suspect]
     Indication: DEPRESSION
     Dosage: 37.5 MG, 3X/DAY
     Route: 048
     Dates: start: 20110323

REACTIONS (3)
  - CRYING [None]
  - MOOD SWINGS [None]
  - DEPRESSED MOOD [None]
